FAERS Safety Report 7898861-7 (Version None)
Quarter: 2011Q4

REPORT INFORMATION
  Report Type: 
  Country: None (occurrence: None)
  Receive Date: 20111107
  Receipt Date: 20110404
  Transmission Date: 20120403
  Serious: No
  Sender: FDA-Public Use
  Company Number: US-BAYER-2011-070437

PATIENT
  Age: 54 Year
  Sex: Female
  Weight: 109 kg

DRUGS (3)
  1. PHILLIPS' COLON HEALTH [Suspect]
     Indication: VITAMIN SUPPLEMENTATION
     Dosage: 1 U, QD, WITH FOOD
     Route: 048
     Dates: start: 20110314, end: 20110403
  2. MULTI-VITAMINS [Suspect]
     Dosage: UNK
     Route: 048
  3. ACETYLSALICYLIC ACID SRT [Suspect]
     Indication: ISCHAEMIC HEART DISEASE PROPHYLAXIS
     Dosage: UNK
     Route: 048

REACTIONS (2)
  - ABDOMINAL PAIN UPPER [None]
  - CONSTIPATION [None]
